FAERS Safety Report 6473708-4 (Version None)
Quarter: 2009Q4

REPORT INFORMATION
  Report Type: 
  Country: None (occurrence: None)
  Receive Date: 20091204
  Receipt Date: 20091202
  Transmission Date: 20100525
  Serious: Yes (Life-Threatening, Other)
  Sender: FDA-Public Use
  Company Number: JP-JNJFOC-20070901772

PATIENT
  Sex: Female
  Weight: 40 kg

DRUGS (19)
  1. ITRIZOLE [Suspect]
     Route: 041
     Dates: start: 20070809, end: 20070813
  2. ITRIZOLE [Suspect]
     Indication: FUNGAEMIA
     Route: 041
     Dates: start: 20070809, end: 20070813
  3. PROGRAF [Concomitant]
     Indication: INTERSTITIAL LUNG DISEASE
     Route: 048
  4. LASIX [Concomitant]
     Indication: RIGHT VENTRICULAR FAILURE
     Route: 042
  5. SOLU-MEDROL [Concomitant]
     Indication: DERMATOMYOSITIS
     Route: 042
  6. TAZOCIN [Concomitant]
     Indication: PNEUMONIA
     Route: 042
     Dates: start: 20070810, end: 20070813
  7. PASIL [Concomitant]
     Indication: PNEUMONIA
     Route: 042
     Dates: start: 20070810, end: 20070813
  8. HANP [Concomitant]
     Indication: RIGHT VENTRICULAR FAILURE
     Route: 042
  9. GRAN [Concomitant]
     Indication: WHITE BLOOD CELL COUNT DECREASED
     Route: 042
     Dates: start: 20070811
  10. BLOPRESS [Concomitant]
     Indication: HYPERTENSION
     Route: 048
  11. TAKEPRON [Concomitant]
     Indication: PROPHYLAXIS
     Route: 048
  12. RENIVACE [Concomitant]
     Indication: HYPERTENSION
     Route: 048
  13. AMLODIPINE [Concomitant]
     Indication: HYPERTENSION
     Route: 048
  14. CONIEL [Concomitant]
     Indication: HYPERTENSION
     Route: 048
  15. LASIX [Concomitant]
     Route: 048
  16. ALDACTONE [Concomitant]
     Indication: RIGHT VENTRICULAR FAILURE
     Route: 048
  17. VANCOMYCIN HCL [Concomitant]
     Indication: PSEUDOMEMBRANOUS COLITIS
     Route: 048
     Dates: start: 20070810
  18. DESYREL [Concomitant]
     Indication: INSOMNIA
     Route: 048
  19. ZYPREXA [Concomitant]
     Indication: INSOMNIA
     Route: 048

REACTIONS (10)
  - BLOOD ALKALINE PHOSPHATASE INCREASED [None]
  - BLOOD CREATININE INCREASED [None]
  - BLOOD POTASSIUM DECREASED [None]
  - BLOOD SODIUM INCREASED [None]
  - BLOOD UREA INCREASED [None]
  - GAMMA-GLUTAMYLTRANSFERASE ABNORMAL [None]
  - GAMMA-GLUTAMYLTRANSFERASE INCREASED [None]
  - LEUKOPENIA [None]
  - NEUTROPHIL COUNT DECREASED [None]
  - RENAL DISORDER [None]
